FAERS Safety Report 6645297-2 (Version None)
Quarter: 2010Q1

REPORT INFORMATION
  Report Type: 
  Country: None (occurrence: None)
  Receive Date: 20100322
  Receipt Date: 20100316
  Transmission Date: 20100710
  Serious: Yes (Other)
  Sender: FDA-Public Use
  Company Number: US-GENENTECH-299282

PATIENT
  Age: 7 Year
  Sex: Male

DRUGS (1)
  1. RITUXAN [Suspect]
     Indication: EPSTEIN-BARR VIRUS ASSOCIATED LYMPHOPROLIFERATIVE DISORDER
     Dosage: UNK
     Route: 042

REACTIONS (1)
  - DISSEMINATED INTRAVASCULAR COAGULATION [None]
